FAERS Safety Report 22539761 (Version 1)
Quarter: 2023Q2

REPORT INFORMATION
  Report Type: Spontaneous
  Country: US (occurrence: US)
  Receive Date: 20230609
  Receipt Date: 20230609
  Transmission Date: 20230721
  Serious: Yes (Other)
  Sender: FDA-Public Use
  Company Number: US-REGENERON PHARMACEUTICALS, INC.-2023-070871

PATIENT
  Sex: Female

DRUGS (1)
  1. EYLEA [Suspect]
     Active Substance: AFLIBERCEPT
     Indication: Product used for unknown indication
     Dosage: FORMULATION: GERRESHEIMER PFS

REACTIONS (2)
  - Blindness transient [Recovering/Resolving]
  - Endophthalmitis [Unknown]

NARRATIVE: CASE EVENT DATE: 20230501
